FAERS Safety Report 4752713-X (Version None)
Quarter: 2005Q3

REPORT INFORMATION
  Report Type: 
  Country: None (occurrence: None)
  Receive Date: 20050823
  Receipt Date: 20050809
  Transmission Date: 20060218
  Serious: Yes (Hospitalization)
  Sender: FDA-Public Use
  Company Number: 195578

PATIENT
  Age: 59 Year
  Sex: Female

DRUGS (2)
  1. AVONEX [Suspect]
     Indication: MULTIPLE SCLEROSIS
     Dosage: 30  UG; QW; IM; 30  UG; QW; IM
     Route: 030
     Dates: start: 19990401, end: 20031201
  2. AVONEX [Suspect]
     Indication: MULTIPLE SCLEROSIS
     Dosage: 30  UG; QW; IM; 30  UG; QW; IM
     Route: 030
     Dates: start: 20031201, end: 20040301

REACTIONS (1)
  - CEREBROVASCULAR ACCIDENT [None]
